FAERS Safety Report 7673243-1 (Version None)
Quarter: 2011Q3

REPORT INFORMATION
  Report Type: 
  Country: None (occurrence: None)
  Receive Date: 20110810
  Receipt Date: 20110805
  Transmission Date: 20111222
  Serious: Yes (Hospitalization, Other)
  Sender: FDA-Public Use
  Company Number: US-PFIZER INC-2011178940

PATIENT
  Sex: Male
  Weight: 81 kg

DRUGS (7)
  1. GLIMEPIRIDE [Concomitant]
     Indication: DIABETES MELLITUS
     Dosage: 1 MG, 3X/DAY, PRE-STUDY
     Route: 048
  2. ACETYLSALICYLIC ACID [Concomitant]
     Indication: PROPHYLAXIS
     Dosage: 81 UNK, 1X/DAY PRE-STUDY
     Route: 048
  3. SUNITINIB MALATE [Suspect]
     Indication: METASTATIC RENAL CELL CARCINOMA
     Dosage: 50 MG, 1X/DAY X 28D THEN 14D BREAK
     Dates: start: 20110711, end: 20110803
  4. SIMVASTATIN [Concomitant]
     Indication: HYPERLIPIDAEMIA
     Dosage: 40 MG, 1X/DAY PRE-STUDY
     Route: 048
  5. LISINOPRIL [Concomitant]
     Indication: HYPERTENSION
     Dosage: 40 MG, 1X/DAY PRE-STUDY
     Route: 048
  6. PIOGLITAZONE HCL [Concomitant]
     Indication: DIABETES MELLITUS
     Dosage: 45 MG, 1X/DAY PRE-STUDY
     Route: 048
  7. PRAZEPAM [Concomitant]
     Indication: ANXIETY
     Dosage: 0.5 MG, AS NEEDED EVERY 8 HOURS, PRE-STUDY
     Route: 048

REACTIONS (1)
  - URINARY TRACT INFECTION [None]
